FAERS Safety Report 14132639 (Version 2)
Quarter: 2017Q4

REPORT INFORMATION
  Report Type: Report from Study
  Country: SE (occurrence: SE)
  Receive Date: 20171027
  Receipt Date: 20171115
  Transmission Date: 20180321
  Serious: Yes (Other)
  Sender: FDA-Public Use
  Company Number: SE-EMD SERONO-8197611

PATIENT
  Age: 10 Year
  Sex: Female
  Weight: 15 kg

DRUGS (5)
  1. SAIZEN [Suspect]
     Active Substance: SOMATROPIN
     Dosage: 0.038 MG/KG.DAY
     Route: 058
     Dates: start: 20140828
  2. SAIZEN [Suspect]
     Active Substance: SOMATROPIN
     Route: 058
     Dates: start: 20171101
  3. SAIZEN [Suspect]
     Active Substance: SOMATROPIN
     Dosage: 0.032 MG/KG/DAY
     Route: 058
     Dates: start: 20131216
  4. SAIZEN [Suspect]
     Active Substance: SOMATROPIN
     Route: 058
  5. SAIZEN [Suspect]
     Active Substance: SOMATROPIN
     Indication: CHRONIC KIDNEY DISEASE
     Route: 058
     Dates: start: 20080417

REACTIONS (2)
  - Type 2 diabetes mellitus [Not Recovered/Not Resolved]
  - Glycosylated haemoglobin increased [Unknown]

NARRATIVE: CASE EVENT DATE: 20120305
